FAERS Safety Report 14077005 (Version 1)
Quarter: 2017Q4

REPORT INFORMATION
  Report Type: Spontaneous
  Country: JP (occurrence: JP)
  Receive Date: 20171011
  Receipt Date: 20171011
  Transmission Date: 20180321
  Serious: No
  Sender: FDA-Public Use
  Company Number: JP-LUPIN PHARMACEUTICALS INC.-2017-04502

PATIENT
  Age: 49 Year
  Sex: Female

DRUGS (7)
  1. CLARITHROMYCIN. [Suspect]
     Active Substance: CLARITHROMYCIN
     Indication: PNEUMONIA MYCOPLASMAL
     Dosage: UNK
     Route: 065
  2. GARENOXACIN [Concomitant]
     Active Substance: GARENOXACIN
     Indication: PYREXIA
  3. PREDNISOLONE. [Concomitant]
     Active Substance: PREDNISOLONE
     Indication: PROPHYLAXIS
     Dosage: 40 MG, QD
     Route: 065
  4. LOXOPROFEN SODIUM [Suspect]
     Active Substance: LOXOPROFEN SODIUM
     Indication: RESPIRATORY DISORDER
     Dosage: UNK
     Route: 065
  5. LOXOPROFEN SODIUM [Suspect]
     Active Substance: LOXOPROFEN SODIUM
     Indication: PYREXIA
  6. SITAFLOXACIN [Suspect]
     Active Substance: SITAFLOXACIN
     Indication: PNEUMONIA MYCOPLASMAL
     Dosage: UNK
     Route: 065
  7. GARENOXACIN [Concomitant]
     Active Substance: GARENOXACIN
     Indication: RESPIRATORY DISORDER
     Dosage: UNK
     Route: 065

REACTIONS (1)
  - Hypersensitivity [Unknown]
